FAERS Safety Report 24037492 (Version 1)
Quarter: 2024Q3

REPORT INFORMATION
  Report Type: Spontaneous
  Country: CN (occurrence: CN)
  Receive Date: 20240702
  Receipt Date: 20240702
  Transmission Date: 20241017
  Serious: Yes (Death)
  Sender: CHEPLAPHARM
  Company Number: CN-CHEPLA-2024008161

PATIENT
  Age: 12 Year
  Sex: Male

DRUGS (6)
  1. CAPECITABINE [Suspect]
     Active Substance: CAPECITABINE
     Indication: Intracranial germ cell tumour
  2. CAPECITABINE [Suspect]
     Active Substance: CAPECITABINE
     Indication: Pineal neoplasm
  3. TEMOZOLOMIDE [Suspect]
     Active Substance: TEMOZOLOMIDE
     Indication: Intracranial germ cell tumour
     Dosage: PALLIATIVE CHEMOTHERAPY
  4. TEMOZOLOMIDE [Suspect]
     Active Substance: TEMOZOLOMIDE
     Indication: Pineal neoplasm
     Dosage: PALLIATIVE CHEMOTHERAPY
  5. TORIPALIMAB [Suspect]
     Active Substance: TORIPALIMAB
     Indication: Intracranial germ cell tumour
  6. TORIPALIMAB [Suspect]
     Active Substance: TORIPALIMAB
     Indication: Pineal neoplasm

REACTIONS (3)
  - Hypovolaemic shock [Fatal]
  - Multiple organ dysfunction syndrome [Fatal]
  - General physical health deterioration [Fatal]
